FAERS Safety Report 18307127 (Version 2)
Quarter: 2020Q4

REPORT INFORMATION
  Report Type: Report from Study
  Country: US (occurrence: US)
  Receive Date: 20200924
  Receipt Date: 20201002
  Transmission Date: 20210113
  Serious: Yes (Hospitalization, Other)
  Sender: FDA-Public Use
  Company Number: US-GILEAD-2020-0496133

PATIENT
  Age: 28 Year
  Sex: Female

DRUGS (18)
  1. AZTREONAM LYSINE [Suspect]
     Active Substance: AZTREONAM LYSINE
     Indication: CYSTIC FIBROSIS LUNG
     Dosage: 75 MG, TID, 28 D ON THEN 28 D OFF, ALTERNATE WITH TOBI
     Route: 055
     Dates: start: 20150210
  2. AZTREONAM LYSINE [Suspect]
     Active Substance: AZTREONAM LYSINE
     Dosage: 75 MG, TID, FOR 28 D ON THEN 28 D OFF
     Route: 055
     Dates: start: 20140531
  3. LORATADINE. [Concomitant]
     Active Substance: LORATADINE
  4. STERILE WATER [Concomitant]
     Active Substance: WATER
  5. MVW COMPLETE FORMULATION D3000 [Concomitant]
     Active Substance: VITAMINS\ZINC
  6. ZENPEP [Concomitant]
     Active Substance: PANCRELIPASE AMYLASE\PANCRELIPASE LIPASE\PANCRELIPASE PROTEASE
  7. AQUADEKS [Concomitant]
     Active Substance: MINERALS\VITAMINS
  8. BOOST PLUS [Concomitant]
     Active Substance: DIETARY SUPPLEMENT
  9. FLUTICASONE. [Concomitant]
     Active Substance: FLUTICASONE
  10. PULMOZYME [Concomitant]
     Active Substance: DORNASE ALFA
  11. TRIKAFTA [Concomitant]
     Active Substance: ELEXACAFTOR\IVACAFTOR\TEZACAFTOR
  12. COLISTIMETHATE [COLISTIMETHATE SODIUM] [Concomitant]
     Active Substance: COLISTIMETHATE SODIUM
  13. TOBRAMYCIN. [Concomitant]
     Active Substance: TOBRAMYCIN
  14. SOD CHL 7% NEB [Concomitant]
  15. VITAMIN D3 [Concomitant]
     Active Substance: CHOLECALCIFEROL
  16. AZITHROMYCIN ANHYDROUS. [Concomitant]
     Active Substance: AZITHROMYCIN ANHYDROUS
  17. MUCINEX [Concomitant]
     Active Substance: GUAIFENESIN
  18. OMEPRAZOLE. [Concomitant]
     Active Substance: OMEPRAZOLE

REACTIONS (1)
  - Lung transplant [Recovered/Resolved]

NARRATIVE: CASE EVENT DATE: 20200828
